FAERS Safety Report 26203744 (Version 1)
Quarter: 2025Q4

REPORT INFORMATION
  Report Type: Spontaneous
  Country: US (occurrence: US)
  Receive Date: 20251226
  Receipt Date: 20251226
  Transmission Date: 20260117
  Serious: Yes (Hospitalization, Other)
  Sender: AMGEN
  Company Number: US-AMGEN-USASP2025251502

PATIENT
  Age: 34 Year
  Sex: Female

DRUGS (2)
  1. RITUXIMAB [Suspect]
     Active Substance: RITUXIMAB
     Indication: Granulomatosis with polyangiitis
     Dosage: UNK
     Route: 065
  2. PREDNISONE [Suspect]
     Active Substance: PREDNISONE
     Indication: Sinusitis
     Dosage: UNK
     Route: 065

REACTIONS (6)
  - Small intestinal ulcer haemorrhage [Recovering/Resolving]
  - Granulomatosis with polyangiitis [Unknown]
  - Atrial tachycardia [Unknown]
  - Neuropathy peripheral [Unknown]
  - Drug ineffective for unapproved indication [Unknown]
  - Off label use [Unknown]
